FAERS Safety Report 10914146 (Version 2)
Quarter: 2015Q2

REPORT INFORMATION
  Report Type: Spontaneous
  Country: US (occurrence: None)
  Receive Date: 20150310
  Receipt Date: 20150403
  Transmission Date: 20150821
  Serious: No
  Sender: FDA-Public Use
  Company Number: US-H14001-15-00348

PATIENT
  Sex: Female

DRUGS (1)
  1. FLUMAZENIL. [Suspect]
     Active Substance: FLUMAZENIL
     Indication: ALCOHOL WITHDRAWAL SYNDROME
     Dosage: 2 MG OVER 25 MIN PERIOD; STARTING WITH 0.1 MG, 0.2 MG TWICE, 0.3 MG ONCE, 0.2 MG, REDUCING TO 0.1 MG
     Route: 040

REACTIONS (3)
  - Venous injury [None]
  - Poor venous access [None]
  - Off label use [None]
